FAERS Safety Report 16175696 (Version 2)
Quarter: 2023Q1

REPORT INFORMATION
  Report Type: Spontaneous
  Country: US (occurrence: US)
  Receive Date: 20190409
  Receipt Date: 20230202
  Transmission Date: 20230418
  Serious: No
  Sender: FDA-Public Use
  Company Number: US-MYLANLABS-2019M1028625

PATIENT
  Sex: Male
  Weight: 77 kg

DRUGS (2)
  1. LIDOCAINE PATCH [Suspect]
     Active Substance: LIDOCAINE
     Indication: Product used for unknown indication
     Dosage: UNK
     Route: 003
  2. LIDOCAINE PATCH [Suspect]
     Active Substance: LIDOCAINE
     Dosage: 5 PERCENT, QD
     Route: 003

REACTIONS (7)
  - Application site pain [Unknown]
  - Product adhesion issue [Unknown]
  - Product size issue [Unknown]
  - Product quality issue [Unknown]
  - Drug tolerance [Unknown]
  - Drug ineffective [Unknown]
  - Off label use [Unknown]
